FAERS Safety Report 4537021-4 (Version None)
Quarter: 2004Q4

REPORT INFORMATION
  Report Type: 
  Country: None (occurrence: None)
  Receive Date: 20041220
  Receipt Date: 20041208
  Transmission Date: 20050328
  Serious: Yes (Other)
  Sender: FDA-Public Use
  Company Number: 2004101444

PATIENT
  Age: 77 Year
  Sex: Male

DRUGS (2)
  1. VIAGRA [Suspect]
     Indication: ILL-DEFINED DISORDER
     Dosage: 50 MG (50 MG, 1 IN 1 WK), ORAL
     Route: 048
     Dates: end: 20041201
  2. ZOLEDRONIC ACID (ZOLEDRONIC ACID) [Suspect]
     Indication: MULTIPLE MYELOMA
     Dosage: 4 MG (4 MG, 1 IN 1 M), INTRAVENOUS
     Route: 042
     Dates: start: 20030501, end: 20041101

REACTIONS (1)
  - BONE MARROW DEPRESSION [None]
